FAERS Safety Report 7777166-9 (Version None)
Quarter: 2011Q3

REPORT INFORMATION
  Report Type: 
  Country: None (occurrence: None)
  Receive Date: 20110922
  Receipt Date: 20110919
  Transmission Date: 20111222
  Serious: Yes (Hospitalization)
  Sender: FDA-Public Use
  Company Number: 2011SP044076

PATIENT
  Sex: Female

DRUGS (2)
  1. ZYPREXA [Suspect]
     Indication: PRODUCT USED FOR UNKNOWN INDICATION
  2. SAPHRIS [Suspect]
     Indication: PRODUCT USED FOR UNKNOWN INDICATION
     Dosage: 10 MG; PO
     Route: 048
     Dates: start: 20110914, end: 20110916

REACTIONS (3)
  - URINARY RETENTION [None]
  - DECREASED APPETITE [None]
  - INCORRECT ROUTE OF DRUG ADMINISTRATION [None]
